FAERS Safety Report 21162166 (Version 1)
Quarter: 2022Q3

REPORT INFORMATION
  Report Type: Spontaneous
  Country: US (occurrence: None)
  Receive Date: 20220802
  Receipt Date: 20220802
  Transmission Date: 20221027
  Serious: Yes (Other)
  Sender: FDA-Public Use
  Company Number: None

PATIENT
  Age: 53 Year
  Sex: Female

DRUGS (1)
  1. ILUVIEN [Suspect]
     Active Substance: FLUOCINOLONE ACETONIDE

REACTIONS (6)
  - Drug implantation [None]
  - Visual impairment [None]
  - Photophobia [None]
  - Glaucoma [None]
  - Impaired work ability [None]
  - Depression [None]

NARRATIVE: CASE EVENT DATE: 20210401
